FAERS Safety Report 7718503-0 (Version None)
Quarter: 2011Q3

REPORT INFORMATION
  Report Type: 
  Country: None (occurrence: None)
  Receive Date: 20110830
  Receipt Date: 20110829
  Transmission Date: 20111222
  Serious: Yes (Other)
  Sender: FDA-Public Use
  Company Number: US-PFIZER INC-2011201509

PATIENT
  Sex: Female
  Weight: 85.714 kg

DRUGS (5)
  1. METFORMIN [Concomitant]
     Dosage: 500 MG, 3X/DAY
  2. CYMBALTA [Concomitant]
     Dosage: 30 MG, UNK
  3. TRICOR [Concomitant]
     Dosage: 145 MG, UNK
  4. CHANTIX [Suspect]
     Indication: SMOKING CESSATION THERAPY
     Dosage: 0.5 MG, 1X/DAY
     Route: 048
     Dates: start: 20110825
  5. LEVOTHYROXINE [Concomitant]
     Dosage: UNK

REACTIONS (1)
  - ANGINA PECTORIS [None]
